FAERS Safety Report 17572555 (Version 28)
Quarter: 2025Q4

REPORT INFORMATION
  Report Type: Report from Study
  Country: US (occurrence: US)
  Receive Date: 20200323
  Receipt Date: 20251014
  Transmission Date: 20260118
  Serious: Yes (Hospitalization, Other)
  Sender: TAKEDA
  Company Number: US-SHIRE-US202010741

PATIENT
  Age: 66 Year
  Sex: Female
  Weight: 79 kg

DRUGS (10)
  1. HUMAN IMMUNOGLOBULIN G\HYALURONIDASE RECOMBINANT HUMAN [Suspect]
     Active Substance: HUMAN IMMUNOGLOBULIN G\HYALURONIDASE (HUMAN RECOMBINANT)
     Indication: Immunodeficiency common variable
     Dosage: 7.5 GRAM
  2. HUMAN IMMUNOGLOBULIN G\HYALURONIDASE RECOMBINANT HUMAN [Suspect]
     Active Substance: HUMAN IMMUNOGLOBULIN G\HYALURONIDASE (HUMAN RECOMBINANT)
     Indication: Primary immunodeficiency syndrome
     Dosage: 15 GRAM
  3. HUMAN IMMUNOGLOBULIN G\HYALURONIDASE RECOMBINANT HUMAN [Suspect]
     Active Substance: HUMAN IMMUNOGLOBULIN G\HYALURONIDASE (HUMAN RECOMBINANT)
     Dosage: UNK
  4. CUVITRU [Suspect]
     Active Substance: HUMAN IMMUNOGLOBULIN G
     Indication: Hypogammaglobulinaemia
     Dosage: UNK UNK, 1/WEEK
  5. CUVITRU [Suspect]
     Active Substance: HUMAN IMMUNOGLOBULIN G
     Indication: Primary immunodeficiency syndrome
     Dosage: 10 GRAM, 1/WEEK
     Dates: start: 20200327
  6. CUVITRU [Suspect]
     Active Substance: HUMAN IMMUNOGLOBULIN G
     Dosage: UNK
  7. LIDOCAINE [Suspect]
     Active Substance: LIDOCAINE
     Indication: Product used for unknown indication
     Dosage: UNK
  8. GAMMAGARD [Concomitant]
     Active Substance: HUMAN IMMUNOGLOBULIN G
     Dosage: UNK
  9. OCTAGAM IMMUNE GLOBULIN (HUMAN) [Concomitant]
     Active Substance: HUMAN IMMUNOGLOBULIN G
     Dosage: UNK
  10. GAMUNEX-C [Concomitant]
     Active Substance: HUMAN IMMUNOGLOBULIN G
     Dosage: UNK

REACTIONS (88)
  - Cerebrovascular accident [Unknown]
  - Large intestinal obstruction [Not Recovered/Not Resolved]
  - Cellulitis [Unknown]
  - Thrombosis [Unknown]
  - Peripheral nerve injury [Unknown]
  - Retinal injury [Recovered/Resolved]
  - Retinal haemorrhage [Unknown]
  - Vein collapse [Unknown]
  - Protein albumin ratio decreased [Unknown]
  - Bronchitis [Unknown]
  - Injection site discharge [Unknown]
  - Weight increased [Unknown]
  - Abdominal discomfort [Unknown]
  - Generalised oedema [Unknown]
  - Sinusitis [Unknown]
  - Weight decreased [Not Recovered/Not Resolved]
  - Pharyngeal swelling [Unknown]
  - Vision blurred [Unknown]
  - Gastrooesophageal reflux disease [Unknown]
  - Incorrect drug administration rate [Unknown]
  - Product leakage [Unknown]
  - Needle issue [Unknown]
  - Heart rate increased [Unknown]
  - Asthma [Unknown]
  - Anaemia [Unknown]
  - Injection site pain [Unknown]
  - Infusion site swelling [Recovering/Resolving]
  - Infusion site nodule [Unknown]
  - Migraine [Unknown]
  - Asthenia [Unknown]
  - Abdominal distension [Not Recovered/Not Resolved]
  - Abdominal pain upper [Not Recovered/Not Resolved]
  - Infusion site pain [Unknown]
  - Infusion site swelling [Unknown]
  - Pyrexia [Unknown]
  - Dyspnoea [Unknown]
  - Fatigue [Unknown]
  - Vomiting [Not Recovered/Not Resolved]
  - Skin disorder [Unknown]
  - Pain [Unknown]
  - Gait inability [Unknown]
  - Joint injury [Unknown]
  - Injection related reaction [Unknown]
  - Blood iron decreased [Unknown]
  - Gait disturbance [Unknown]
  - Peripheral swelling [Unknown]
  - Ligament sprain [Unknown]
  - Influenza [Unknown]
  - Head injury [Unknown]
  - Contusion [Unknown]
  - Aphonia [Unknown]
  - Dust allergy [Unknown]
  - COVID-19 [Recovering/Resolving]
  - Seasonal allergy [Unknown]
  - Joint lock [Unknown]
  - Vein disorder [Unknown]
  - Irritable bowel syndrome [Unknown]
  - Stress [Unknown]
  - Obstruction [Unknown]
  - Injection site erythema [Recovering/Resolving]
  - Decreased appetite [Unknown]
  - Balance disorder [Unknown]
  - Hot flush [Unknown]
  - Infusion site bruising [Unknown]
  - Infusion site warmth [Not Recovered/Not Resolved]
  - Infusion site haemorrhage [Unknown]
  - Infusion site mass [Not Recovered/Not Resolved]
  - Rash [Unknown]
  - Fibromyalgia [Unknown]
  - Neuralgia [Unknown]
  - Fall [Unknown]
  - Immunoglobulins decreased [Unknown]
  - Drug hypersensitivity [Unknown]
  - Feeding disorder [Unknown]
  - Limb injury [Unknown]
  - Foot fracture [Unknown]
  - Gastrointestinal disorder [Unknown]
  - Intervertebral disc protrusion [Unknown]
  - Musculoskeletal discomfort [Unknown]
  - Viral infection [Unknown]
  - Pollakiuria [Unknown]
  - Arthritis [Unknown]
  - Dysphonia [Unknown]
  - Insomnia [Unknown]
  - Nasal congestion [Unknown]
  - Back injury [Unknown]
  - Arthralgia [Unknown]
  - Nausea [Unknown]
